FAERS Safety Report 6279755-X (Version None)
Quarter: 2009Q3

REPORT INFORMATION
  Report Type: 
  Country: None (occurrence: None)
  Receive Date: 20090723
  Receipt Date: 20090702
  Transmission Date: 20100115
  Serious: Yes (Other)
  Sender: FDA-Public Use
  Company Number: US-BAYER-200922920NA

PATIENT
  Age: 68 Year
  Sex: Female

DRUGS (1)
  1. MAGNEVIST [Suspect]
     Indication: NUCLEAR MAGNETIC RESONANCE IMAGING
     Route: 042
     Dates: start: 20090202, end: 20090202

REACTIONS (13)
  - ASTHENIA [None]
  - ATRIAL FIBRILLATION [None]
  - DIARRHOEA [None]
  - DIZZINESS [None]
  - DRUG LEVEL CHANGED [None]
  - DYSURIA [None]
  - INCONTINENCE [None]
  - LETHARGY [None]
  - OEDEMA PERIPHERAL [None]
  - PYREXIA [None]
  - SYNCOPE [None]
  - TREMOR [None]
  - VOMITING [None]
